FAERS Safety Report 16376355 (Version 1)
Quarter: 2019Q2

REPORT INFORMATION
  Report Type: Spontaneous
  Country: GB (occurrence: GB)
  Receive Date: 20190531
  Receipt Date: 20190531
  Transmission Date: 20190711
  Serious: Yes (Other)
  Sender: FDA-Public Use
  Company Number: GB-TEVA-2019-GB-1056237

PATIENT
  Age: 11 Year
  Sex: Female

DRUGS (1)
  1. TOPIRAMATE. [Suspect]
     Active Substance: TOPIRAMATE
     Indication: HEADACHE
     Route: 048
     Dates: start: 20180912, end: 20181017

REACTIONS (4)
  - Hallucination, auditory [Unknown]
  - Psychotic disorder [Unknown]
  - Hypoacusis [Unknown]
  - Nightmare [Unknown]

NARRATIVE: CASE EVENT DATE: 20181014
